FAERS Safety Report 24201853 (Version 2)
Quarter: 2024Q3

REPORT INFORMATION
  Report Type: Spontaneous
  Country: US (occurrence: US)
  Receive Date: 20240812
  Receipt Date: 20240908
  Transmission Date: 20241016
  Serious: Yes (Death, Hospitalization, Other)
  Sender: MERCK
  Company Number: US-009507513-2407USA009701

PATIENT
  Age: 36 Year
  Sex: Male
  Weight: 94.331 kg

DRUGS (1)
  1. KEYTRUDA [Suspect]
     Active Substance: PEMBROLIZUMAB
     Indication: Rectosigmoid cancer stage III
     Dosage: 200 MILLIGRAM, Q3W
     Route: 042
     Dates: start: 20240105, end: 20240315

REACTIONS (5)
  - Disseminated intravascular coagulation [Fatal]
  - Abdominal pain [Fatal]
  - Sepsis [Unknown]
  - Nausea [Unknown]
  - Acidosis [Unknown]

NARRATIVE: CASE EVENT DATE: 20240401
